FAERS Safety Report 4331711-4 (Version None)
Quarter: 2004Q2

REPORT INFORMATION
  Report Type: 
  Country: None (occurrence: None)
  Receive Date: 20040405
  Receipt Date: 20030401
  Transmission Date: 20050107
  Serious: No
  Sender: FDA-Public Use
  Company Number: US-GLAXOSMITHKLINE-A0402921A

PATIENT
  Age: 22 Year
  Sex: Female

DRUGS (8)
  1. FLOVENT [Suspect]
     Indication: ASTHMA
     Dosage: 4PUFF TWICE PER DAY
     Route: 055
  2. PREDNISONE [Suspect]
     Route: 065
     Dates: start: 20030328
  3. PROTONIX [Concomitant]
     Route: 065
  4. SINGULAIR [Concomitant]
     Route: 065
  5. SEREVENT [Concomitant]
     Route: 055
  6. ALESSE [Concomitant]
     Route: 065
  7. MULTI-VITAMIN [Concomitant]
     Route: 065
  8. BIAXIN [Concomitant]
     Route: 065
     Dates: start: 20030328

REACTIONS (2)
  - HEART RATE INCREASED [None]
  - PARAESTHESIA [None]
